FAERS Safety Report 7537106-4 (Version None)
Quarter: 2011Q2

REPORT INFORMATION
  Report Type: 
  Country: None (occurrence: None)
  Receive Date: 20110609
  Receipt Date: 20110530
  Transmission Date: 20111010
  Serious: Yes (Hospitalization, Other)
  Sender: FDA-Public Use
  Company Number: PHHY2011AU47973

PATIENT
  Sex: Female

DRUGS (1)
  1. EXJADE [Suspect]
     Indication: IRON OVERLOAD
     Dosage: 500 MG
     Route: 048
     Dates: start: 20100817

REACTIONS (3)
  - HEADACHE [None]
  - CEREBROVASCULAR ACCIDENT [None]
  - CIRCULATORY COLLAPSE [None]
